FAERS Safety Report 4646463-8 (Version None)
Quarter: 2005Q2

REPORT INFORMATION
  Report Type: 
  Country: None (occurrence: None)
  Receive Date: 20050427
  Receipt Date: 20040401
  Transmission Date: 20051028
  Serious: No
  Sender: FDA-Public Use
  Company Number: US-GLAXOSMITHKLINE-A0505555A

PATIENT
  Age: 10 Year
  Sex: Female

DRUGS (1)
  1. FLOVENT [Suspect]
     Indication: ASTHMA
     Route: 055

REACTIONS (2)
  - AGGRESSION [None]
  - AGITATION [None]
